FAERS Safety Report 6855977-1 (Version None)
Quarter: 2010Q3

REPORT INFORMATION
  Report Type: 
  Country: None (occurrence: None)
  Receive Date: 20100716
  Receipt Date: 20100716
  Transmission Date: 20110219
  Serious: No
  Sender: FDA-Public Use
  Company Number: None

PATIENT
  Sex: Female
  Weight: 54.4316 kg

DRUGS (3)
  1. DORYX [Suspect]
     Indication: BARTONELLA TEST POSITIVE
     Dosage: 300 MG, 3X'S DA
     Dates: start: 20100401, end: 20100501
  2. DORYX [Suspect]
     Indication: BORRELIA TEST POSITIVE
     Dosage: 300 MG, 3X'S DA
     Dates: start: 20100401, end: 20100501
  3. DOXYCYCLINE [Suspect]
     Dosage: ANY DOSE

REACTIONS (4)
  - ABDOMINAL DISTENSION [None]
  - BURNING SENSATION [None]
  - NAUSEA [None]
  - VOMITING [None]
